FAERS Safety Report 8919807 (Version 2)
Quarter: 2013Q1

REPORT INFORMATION
  Report Type: Spontaneous
  Country: US (occurrence: US)
  Receive Date: 20121121
  Receipt Date: 20130315
  Transmission Date: 20140127
  Serious: Yes (Other)
  Sender: FDA-Public Use
  Company Number: US-BAYER-2012-120447

PATIENT
  Age: 41 Year
  Sex: Female
  Weight: 63.49 kg

DRUGS (12)
  1. YAZ [Suspect]
     Dosage: UNK
     Dates: start: 200911, end: 201003
  2. YASMIN [Suspect]
     Dosage: UNK
     Dates: start: 200911, end: 201003
  3. LEVOTHYROXINE [Concomitant]
     Dosage: 25 ?G, EVERY DAY
     Route: 048
     Dates: start: 201003
  4. METFORMIN [Concomitant]
     Dosage: 500 MG, BID
     Route: 048
     Dates: start: 201003
  5. LAMICTAL [Concomitant]
     Dosage: 500 MG,EVERYDAY
     Route: 048
     Dates: start: 201009
  6. BUSPAR [Concomitant]
     Dosage: 300 MG, UNK
  7. ZOLOFT [Concomitant]
     Indication: DEPRESSION
     Dosage: TOOK FOR 7 YEARS
  8. CIPROFLOXACIN [Concomitant]
     Dosage: 500 MG, UNK
  9. WELLBUTRIN [Concomitant]
     Dosage: 300 MG, EVERY DAY
     Route: 048
  10. CEFROXIL [Concomitant]
     Dosage: 500 MG, UNK
  11. HYDROCODONE W/ACETAMINOPHEN [Concomitant]
     Dosage: APAP 5-500 MG
  12. LODRANE 24 [Concomitant]
     Dosage: 12-90 MG

REACTIONS (10)
  - Gallbladder disorder [None]
  - Cholecystitis chronic [None]
  - Pain [None]
  - Injury [None]
  - General physical health deterioration [None]
  - Anxiety [None]
  - Emotional distress [None]
  - Abdominal pain upper [None]
  - Decreased appetite [None]
  - Aphagia [None]
